FAERS Safety Report 9290054 (Version 1)
Quarter: 2012Q4

REPORT INFORMATION
  Report Type: Spontaneous
  Country: US (occurrence: None)
  Receive Date: 20121005
  Receipt Date: 20121005
  Transmission Date: 20130627
  Serious: Yes (Other)
  Sender: FDA-Public Use
  Company Number: US-009563

PATIENT
  Age: 9 Year
  Sex: Female
  Weight: 17.2 kg

DRUGS (1)
  1. TEV-TROPIN [Suspect]
     Indication: GROWTH HORMONE DEFICIENCY
     Dosage: 6 days a week
     Route: 058
     Dates: start: 20120607, end: 20120824

REACTIONS (6)
  - Weight decreased [None]
  - Diarrhoea [None]
  - Nausea [None]
  - Vomiting [None]
  - Headache [None]
  - Abdominal pain upper [None]
